FAERS Safety Report 6044534-5 (Version None)
Quarter: 2009Q1

REPORT INFORMATION
  Report Type: 
  Country: None (occurrence: None)
  Receive Date: 20090120
  Receipt Date: 20090113
  Transmission Date: 20090719
  Serious: Yes (Other)
  Sender: FDA-Public Use
  Company Number: IE-WYE-G02922509

PATIENT
  Age: 54 Year
  Sex: Female

DRUGS (5)
  1. EFFEXOR XR [Suspect]
     Indication: DEPRESSION
     Dosage: UNKNOWN
     Route: 048
     Dates: start: 20081212, end: 20081219
  2. MIRTAZAPINE [Concomitant]
     Dosage: UNKNOWN
  3. SERETIDE [Concomitant]
     Dosage: UNKNOWN
  4. ZIMOVANE [Concomitant]
     Dosage: UNKNOWN
  5. SPIRIVA [Concomitant]
     Dosage: UNKNOWN

REACTIONS (2)
  - FEELING HOT [None]
  - VOMITING [None]
